FAERS Safety Report 7419401-2 (Version None)
Quarter: 2011Q2

REPORT INFORMATION
  Report Type: 
  Country: None (occurrence: None)
  Receive Date: 20110416
  Receipt Date: 20110404
  Transmission Date: 20111010
  Serious: Yes (Other)
  Sender: FDA-Public Use
  Company Number: JP-UCBSA-030855

PATIENT
  Sex: Female

DRUGS (4)
  1. ZETIA [Concomitant]
     Route: 048
     Dates: start: 20100101
  2. XYZAL [Suspect]
     Indication: RHINITIS ALLERGIC
     Route: 048
     Dates: start: 20110402
  3. ARICEPT [Concomitant]
     Dosage: POR
     Route: 048
     Dates: start: 20060101
  4. TAGAMET [Concomitant]
     Dosage: POR
     Route: 048
     Dates: start: 20030101

REACTIONS (2)
  - RASH [None]
  - OVERDOSE [None]
